APPROVED DRUG PRODUCT: RANOLAZINE
Active Ingredient: RANOLAZINE
Strength: 500MG
Dosage Form/Route: TABLET, EXTENDED RELEASE;ORAL
Application: A211865 | Product #001 | TE Code: AB
Applicant: SUNSHINE LAKE PHARMA CO LTD
Approved: Mar 23, 2020 | RLD: No | RS: No | Type: RX